FAERS Safety Report 21965808 (Version 1)
Quarter: 2023Q1

REPORT INFORMATION
  Report Type: Other
  Country: CA (occurrence: None)
  Receive Date: 20230208
  Receipt Date: 20230208
  Transmission Date: 20230417
  Serious: Yes (Other)
  Sender: FDA-Public Use
  Company Number: CA-ROCHE-3264880

PATIENT
  Sex: Female

DRUGS (8)
  1. EVRYSDI [Suspect]
     Active Substance: RISDIPLAM
     Indication: Spinal muscular atrophy
     Route: 048
     Dates: start: 20201207
  2. EVRYSDI [Suspect]
     Active Substance: RISDIPLAM
     Route: 048
     Dates: start: 2021, end: 2022
  3. EVRYSDI [Suspect]
     Active Substance: RISDIPLAM
     Route: 048
  4. CHLORAL HYDRATE [Concomitant]
     Active Substance: CHLORAL HYDRATE
  5. GABAPENTIN [Concomitant]
     Active Substance: GABAPENTIN
  6. MELATONIN [Concomitant]
     Active Substance: MELATONIN
  7. NAPROXEN [Concomitant]
     Active Substance: NAPROXEN
  8. TYLENOL [Concomitant]
     Active Substance: ACETAMINOPHEN

REACTIONS (2)
  - Oral neoplasm benign [Unknown]
  - Precocious puberty [Unknown]
